FAERS Safety Report 11117448 (Version 2)
Quarter: 2015Q2

REPORT INFORMATION
  Report Type: Spontaneous
  Country: US (occurrence: US)
  Receive Date: 20150516
  Receipt Date: 20150612
  Transmission Date: 20150821
  Serious: No
  Sender: FDA-Public Use
  Company Number: US-ASTRAZENECA-2015SE38850

PATIENT
  Age: 29235 Day
  Sex: Female

DRUGS (2)
  1. TUDORZA PRESSAIR [Concomitant]
     Active Substance: ACLIDINIUM BROMIDE
  2. SYMBICORT [Suspect]
     Active Substance: BUDESONIDE\FORMOTEROL FUMARATE DIHYDRATE
     Dosage: 160MCG/4.5MCG, 2 PUFFS, TWO TIMES A DAY
     Route: 055
     Dates: start: 201404, end: 20140420

REACTIONS (4)
  - Chronic obstructive pulmonary disease [Unknown]
  - Device misuse [Unknown]
  - Device failure [Unknown]
  - Drug dose omission [Unknown]

NARRATIVE: CASE EVENT DATE: 20150420
